FAERS Safety Report 9460726 (Version 1)
Quarter: 2013Q3

REPORT INFORMATION
  Report Type: Spontaneous
  Country: US (occurrence: US)
  Receive Date: 20130815
  Receipt Date: 20130815
  Transmission Date: 20140515
  Serious: Yes (Hospitalization)
  Sender: FDA-Public Use
  Company Number: US-GLAXOSMITHKLINE-A0912908A

PATIENT
  Age: 83 Year
  Sex: Male

DRUGS (6)
  1. PROMACTA [Suspect]
     Indication: THROMBOSIS
     Dosage: 50MG PER DAY
     Route: 048
     Dates: start: 20100201
  2. CLOBETASOL [Suspect]
     Indication: RASH PRURITIC
     Dates: start: 201101
  3. WARFARIN [Concomitant]
  4. UNKNOWN [Concomitant]
  5. FUROSEMIDE [Concomitant]
  6. TAMSULOSIN [Concomitant]

REACTIONS (6)
  - Thrombosis [Not Recovered/Not Resolved]
  - Hospitalisation [Unknown]
  - Local swelling [Not Recovered/Not Resolved]
  - Pruritus [Not Recovered/Not Resolved]
  - Rash [Not Recovered/Not Resolved]
  - Drug ineffective [Not Recovered/Not Resolved]
